FAERS Safety Report 9435911 (Version 1)
Quarter: 2013Q3

REPORT INFORMATION
  Report Type: Spontaneous
  Country: US (occurrence: US)
  Receive Date: 20130801
  Receipt Date: 20130801
  Transmission Date: 20140515
  Serious: Yes (Hospitalization)
  Sender: FDA-Public Use
  Company Number: US-US-EMD SERONO, INC.-7226344

PATIENT
  Age: 69 Year
  Sex: Female

DRUGS (14)
  1. REBIF [Suspect]
     Indication: MULTIPLE SCLEROSIS
     Route: 058
  2. MIDODRINE [Concomitant]
     Indication: PRODUCT USED FOR UNKNOWN INDICATION
  3. OMEPRAZOLE [Concomitant]
     Indication: PRODUCT USED FOR UNKNOWN INDICATION
  4. WARFARIN [Concomitant]
     Indication: PRODUCT USED FOR UNKNOWN INDICATION
  5. CLARITIN-D [Concomitant]
     Indication: PRODUCT USED FOR UNKNOWN INDICATION
     Dosage: 10-240 MG
  6. ALPRAZOLAM [Concomitant]
     Indication: PRODUCT USED FOR UNKNOWN INDICATION
  7. CALCIUM [Concomitant]
     Indication: PRODUCT USED FOR UNKNOWN INDICATION
  8. SOTALOL [Concomitant]
     Indication: PRODUCT USED FOR UNKNOWN INDICATION
  9. AMLODIPINE [Concomitant]
     Indication: PRODUCT USED FOR UNKNOWN INDICATION
  10. LOVASTATIN [Concomitant]
     Indication: PRODUCT USED FOR UNKNOWN INDICATION
  11. VITAMIN D                          /00107901/ [Concomitant]
     Indication: PRODUCT USED FOR UNKNOWN INDICATION
  12. OMEGA 3 [Concomitant]
     Indication: PRODUCT USED FOR UNKNOWN INDICATION
  13. MULTIVITAMIN                       /00831701/ [Concomitant]
     Indication: PRODUCT USED FOR UNKNOWN INDICATION
  14. ALEVE                              /00256202/ [Concomitant]
     Indication: PRODUCT USED FOR UNKNOWN INDICATION

REACTIONS (2)
  - Urinary tract infection [Recovering/Resolving]
  - Multiple sclerosis relapse [Recovering/Resolving]
